FAERS Safety Report 9202045 (Version 1)
Quarter: 2013Q2

REPORT INFORMATION
  Report Type: Spontaneous
  Country: US (occurrence: US)
  Receive Date: 20130401
  Receipt Date: 20130401
  Transmission Date: 20140414
  Serious: Yes (Hospitalization)
  Sender: FDA-Public Use
  Company Number: US-AMGEN-USASP2013021024

PATIENT
  Age: 67 Year
  Sex: Male

DRUGS (2)
  1. NPLATE [Suspect]
     Indication: THROMBOCYTOPENIA
     Dosage: 1 MUG/KG, UNK
     Dates: start: 20130314
  2. NPLATE [Suspect]
     Indication: APLASTIC ANAEMIA

REACTIONS (2)
  - Rhabdomyolysis [Unknown]
  - Sepsis [Unknown]
